FAERS Safety Report 5153810-X (Version None)
Quarter: 2006Q4

REPORT INFORMATION
  Report Type: 
  Country: None (occurrence: None)
  Receive Date: 20061120
  Receipt Date: 20060308
  Transmission Date: 20070319
  Serious: Yes (Hospitalization)
  Sender: FDA-Public Use
  Company Number: TW-BAYER-200610927GDS

PATIENT
  Age: 80 Year
  Sex: Female

DRUGS (2)
  1. NIFEDIPINE [Suspect]
     Indication: CHEST PAIN
     Route: 048
  2. NITROGLYCERIN [Suspect]
     Indication: CHEST PAIN
     Route: 065

REACTIONS (10)
  - ABDOMINAL PAIN UPPER [None]
  - FAECAL INCONTINENCE [None]
  - HYPOREFLEXIA [None]
  - ISCHAEMIC STROKE [None]
  - MUSCLE SPASTICITY [None]
  - MUSCULAR WEAKNESS [None]
  - PARAESTHESIA [None]
  - SENSORY LOSS [None]
  - SPINAL CORD INFARCTION [None]
  - URINARY INCONTINENCE [None]
